FAERS Safety Report 5908987-2 (Version None)
Quarter: 2008Q4

REPORT INFORMATION
  Report Type: 
  Country: None (occurrence: None)
  Receive Date: 20081006
  Receipt Date: 20081006
  Transmission Date: 20090506
  Serious: Yes (Death, Hospitalization)
  Sender: FDA-Public Use
  Company Number: US-ABBOTT-08P-163-0477896-00

PATIENT
  Sex: Female
  Weight: 59.02 kg

DRUGS (32)
  1. SIMCOR [Suspect]
     Indication: BLOOD TRIGLYCERIDES INCREASED
     Dosage: 500/20 MG DAILY
     Route: 048
     Dates: start: 20080701, end: 20080701
  2. RABEPRAZOLE SODIUM [Concomitant]
     Indication: GASTROOESOPHAGEAL REFLUX DISEASE
     Route: 048
  3. BRIMONIDINE [Concomitant]
     Indication: GLAUCOMA
     Dosage: IN EACH EYE, DAILY
     Route: 047
  4. EZETIMIBE [Concomitant]
     Indication: BLOOD CHOLESTEROL INCREASED
     Route: 048
  5. EZETIMIBE [Concomitant]
     Indication: BLOOD TRIGLYCERIDES INCREASED
  6. VALPROATE SODIUM [Concomitant]
     Indication: BIPOLAR DISORDER
     Route: 048
     Dates: start: 19980101
  7. LEVOTHYROXINE SODIUM [Concomitant]
     Indication: DRUG USE FOR UNKNOWN INDICATION
     Route: 048
  8. DIGOXIN [Concomitant]
     Indication: DRUG USE FOR UNKNOWN INDICATION
     Route: 048
  9. ATENOLOL [Concomitant]
     Indication: HYPERTENSION
     Route: 048
  10. NITROGLYCERIN [Concomitant]
     Indication: DRUG USE FOR UNKNOWN INDICATION
     Route: 061
  11. MORPHINE SULFATE [Concomitant]
     Indication: DRUG USE FOR UNKNOWN INDICATION
     Route: 048
  12. OXYGEN [Concomitant]
     Indication: CHRONIC OBSTRUCTIVE PULMONARY DISEASE
     Dosage: CONTINUOUS
     Route: 045
     Dates: start: 20050101
  13. OXYGEN [Concomitant]
     Indication: EMPHYSEMA
  14. LOTREL [Concomitant]
     Indication: DRUG USE FOR UNKNOWN INDICATION
     Dosage: 5/40 MG
     Route: 048
  15. CLOPIDOGREL [Concomitant]
     Indication: DRUG USE FOR UNKNOWN INDICATION
     Route: 048
  16. HYDROXYZINE [Concomitant]
     Indication: PRURITUS
     Dosage: UP TO TID, AS NEEDED
     Route: 048
  17. LORAZEPAM [Concomitant]
     Indication: DRUG USE FOR UNKNOWN INDICATION
     Route: 048
  18. PREGABALIN [Concomitant]
     Indication: PARAESTHESIA
     Route: 048
  19. TRAMADOL HCL [Concomitant]
     Indication: PAIN
     Dosage: 3 IN 1 D OR AS NEEDED
     Route: 048
  20. TOLTERODINE TARTRATE [Concomitant]
     Indication: DRUG USE FOR UNKNOWN INDICATION
     Route: 048
  21. EPOETIN ALFA [Concomitant]
     Indication: IRON DEFICIENCY ANAEMIA
     Route: 050
  22. TERIPARATIDE [Concomitant]
     Indication: DRUG USE FOR UNKNOWN INDICATION
     Route: 050
  23. TIOTROPIUM BROMIDE [Concomitant]
     Indication: CHRONIC OBSTRUCTIVE PULMONARY DISEASE
     Route: 055
  24. TIOTROPIUM BROMIDE [Concomitant]
     Indication: EMPHYSEMA
  25. FUROSEMIDE [Concomitant]
     Indication: FLUID RETENTION
     Dosage: UP TO 3 PILLS DAILY, AS NEEDED
     Route: 048
  26. FERROUS GLUCONATE [Concomitant]
     Indication: IRON DEFICIENCY ANAEMIA
     Route: 048
  27. MOMETASONE FUROATE [Concomitant]
     Indication: SINUS CONGESTION
     Dosage: DAILY, AS NEEDED
     Route: 045
  28. PHENAZOPYRIDINE HCL TAB [Concomitant]
     Indication: DRUG USE FOR UNKNOWN INDICATION
     Dosage: 2 IN 1 D, AS NEEDED
     Route: 048
  29. STOOL SOFTENER [Concomitant]
     Indication: DRUG USE FOR UNKNOWN INDICATION
     Dosage: AS NEEDED
     Route: 048
  30. LOMOTIL [Concomitant]
     Indication: DIARRHOEA
     Dosage: AS NEEDED
  31. ACETAMINOPHEN [Concomitant]
     Indication: PAIN
     Dosage: 2 IN 1 D AND AS NEEDED
     Route: 048
  32. SALBUTAMOL [Concomitant]
     Indication: ASTHMA
     Route: 055

REACTIONS (8)
  - EATING DISORDER [None]
  - MULTI-ORGAN FAILURE [None]
  - PNEUMONIA [None]
  - POLLAKIURIA [None]
  - PULMONARY OEDEMA [None]
  - RENAL FAILURE [None]
  - RENAL IMPAIRMENT [None]
  - TREMOR [None]
